FAERS Safety Report 6361459-6 (Version None)
Quarter: 2009Q3

REPORT INFORMATION
  Report Type: 
  Country: None (occurrence: None)
  Receive Date: 20090918
  Receipt Date: 20090910
  Transmission Date: 20100115
  Serious: Yes (Hospitalization)
  Sender: FDA-Public Use
  Company Number: BE-ASTRAZENECA-2009SE12329

PATIENT
  Age: 40 Year
  Sex: Female
  Weight: 45 kg

DRUGS (2)
  1. SEROQUEL [Suspect]
     Dosage: 100 OR 150 MG
     Route: 048
  2. RISPERDAL [Concomitant]

REACTIONS (1)
  - RASH PAPULAR [None]
